FAERS Safety Report 5841871-1 (Version None)
Quarter: 2008Q3

REPORT INFORMATION
  Report Type: 
  Country: None (occurrence: None)
  Receive Date: 20080812
  Receipt Date: 20080804
  Transmission Date: 20090109
  Serious: Yes (Hospitalization, Other)
  Sender: FDA-Public Use
  Company Number: US-AMGEN-US287971

PATIENT
  Sex: Female
  Weight: 16 kg

DRUGS (5)
  1. EPOGEN [Suspect]
     Indication: RENAL FAILURE CHRONIC
     Route: 058
     Dates: start: 20070305
  2. CALCIUM CARBONATE [Concomitant]
  3. MULTI-VITAMINS [Concomitant]
  4. ENALAPRIL MALEATE [Concomitant]
  5. IRON [Concomitant]

REACTIONS (3)
  - ANTI-ERYTHROPOIETIN ANTIBODY POSITIVE [None]
  - APLASIA PURE RED CELL [None]
  - NEUTRALISING ANTIBODIES POSITIVE [None]
